APPROVED DRUG PRODUCT: XYZAL ALLERGY 24HR
Active Ingredient: LEVOCETIRIZINE DIHYDROCHLORIDE
Strength: 5MG
Dosage Form/Route: TABLET;ORAL
Application: N209089 | Product #001
Applicant: CHATTEM INC DBA SANOFI CONSUMER HEALTHCARE
Approved: Jan 31, 2017 | RLD: Yes | RS: Yes | Type: OTC